FAERS Safety Report 10228378 (Version 1)
Quarter: 2014Q1

REPORT INFORMATION
  Report Type: Spontaneous
  Country: US (occurrence: None)
  Receive Date: 20140306
  Receipt Date: 20140306
  Transmission Date: 20141002
  Serious: Yes (Other)
  Sender: FDA-Public Use
  Company Number: 163-21880-13052908

PATIENT
  Age: 82 Year
  Sex: Male

DRUGS (4)
  1. REVLIMID (LENALIDOMIDE) (25 MILLIGRAM, CAPSULES) [Suspect]
     Indication: PLASMA CELL MYELOMA
     Dosage: 25 MG, 21 IN 21 D, PO
     Route: 048
     Dates: start: 201301, end: 20130523
  2. LEVOXYL (LEVOTHYROXINE SODIUM) (UNKNOWN) [Concomitant]
  3. LORTAB (VICODIN) (UNKNOWN) [Concomitant]
  4. AMITIZA (LUBIPROSTONE) (UNKNOWN) [Concomitant]

REACTIONS (4)
  - Platelet count decreased [None]
  - Pruritus [None]
  - Photosensitivity reaction [None]
  - Myalgia [None]
